FAERS Safety Report 26131325 (Version 1)
Quarter: 2025Q4

REPORT INFORMATION
  Report Type: Spontaneous
  Country: US (occurrence: None)
  Receive Date: 20251205
  Receipt Date: 20251205
  Transmission Date: 20260119
  Serious: No
  Sender: FDA-CTU
  Company Number: None

PATIENT
  Sex: Female

DRUGS (1)
  1. SKYRIZI [Suspect]
     Active Substance: RISANKIZUMAB-RZAA
     Indication: Crohn^s disease
     Dosage: OTHER STRENGTH : 360MG/2.4M;?OTHER FREQUENCY : EVERY 8 WEEKS;
     Route: 058
     Dates: start: 20251125

REACTIONS (2)
  - Product storage error [None]
  - Product storage error [None]
